FAERS Safety Report 23061949 (Version 1)
Quarter: 2023Q4

REPORT INFORMATION
  Report Type: Spontaneous
  Country: US (occurrence: US)
  Receive Date: 20231013
  Receipt Date: 20231013
  Transmission Date: 20240109
  Serious: No
  Sender: FDA-Public Use
  Company Number: US-STRIDES ARCOLAB LIMITED-2022SP015502

PATIENT
  Age: 44 Year
  Sex: Female
  Weight: 74.83 kg

DRUGS (4)
  1. ACCOLATE [Suspect]
     Active Substance: ZAFIRLUKAST
     Indication: Asthma
     Dosage: UNK
     Route: 065
  2. ACCOLATE [Suspect]
     Active Substance: ZAFIRLUKAST
     Dosage: UNK, ONCE A DAY (TABLET)
     Route: 048
     Dates: start: 20221121, end: 20221124
  3. FLOVENT HFA [Concomitant]
     Active Substance: FLUTICASONE PROPIONATE
     Indication: Asthma
     Dosage: UNK,ONCE A DAY OR SOME TIMES TWICE A DAY
     Route: 065
  4. ALLEGRA [Concomitant]
     Active Substance: FEXOFENADINE HYDROCHLORIDE
     Indication: Hypersensitivity
     Dosage: UNK, ONCE A DAY
     Route: 065

REACTIONS (3)
  - Pharyngeal swelling [Unknown]
  - Adverse drug reaction [Unknown]
  - Product dose omission issue [Unknown]

NARRATIVE: CASE EVENT DATE: 20221124
